FAERS Safety Report 15906854 (Version 2)
Quarter: 2019Q1

REPORT INFORMATION
  Report Type: Spontaneous
  Country: US (occurrence: US)
  Receive Date: 20190204
  Receipt Date: 20190206
  Transmission Date: 20190417
  Serious: No
  Sender: FDA-Public Use
  Company Number: US-PFIZER INC-2019044926

PATIENT
  Age: 63 Year
  Sex: Female

DRUGS (1)
  1. GENOTROPIN MQ [Suspect]
     Active Substance: SOMATROPIN
     Dosage: 1.4 MG, DAILY

REACTIONS (21)
  - Blood glucose increased [Unknown]
  - Aspartate aminotransferase increased [Unknown]
  - Insulin C-peptide decreased [Unknown]
  - Low density lipoprotein increased [Unknown]
  - Mean cell haemoglobin increased [Unknown]
  - Basophil count increased [Unknown]
  - Bacterial test positive [Unknown]
  - Blood urea nitrogen/creatinine ratio increased [Unknown]
  - White blood cell count decreased [Unknown]
  - Glycosylated haemoglobin increased [Unknown]
  - Insulin-like growth factor decreased [Unknown]
  - Neutrophil count decreased [Unknown]
  - Blood ketone body increased [Unknown]
  - Blood chloride decreased [Unknown]
  - Thyroxine free increased [Unknown]
  - Apolipoprotein A-I increased [Unknown]
  - Antinuclear antibody positive [Unknown]
  - Blood urea increased [Unknown]
  - Blood sodium decreased [Unknown]
  - Urine ketone body present [Unknown]
  - Alanine aminotransferase increased [Unknown]

NARRATIVE: CASE EVENT DATE: 20171229
